FAERS Safety Report 20209585 (Version 3)
Quarter: 2022Q3

REPORT INFORMATION
  Report Type: Spontaneous
  Country: US (occurrence: US)
  Receive Date: 20211221
  Receipt Date: 20220930
  Transmission Date: 20221027
  Serious: No
  Sender: FDA-Public Use
  Company Number: US-SA-SAC20211213000116

PATIENT
  Age: 23 Year
  Sex: Female

DRUGS (1)
  1. DUPIXENT [Suspect]
     Active Substance: DUPILUMAB
     Indication: Dermatitis atopic
     Dosage: 300 MG, QOW
     Route: 058
     Dates: start: 20211014

REACTIONS (3)
  - Chest pain [Unknown]
  - Erythema [Unknown]
  - Rash [Unknown]

NARRATIVE: CASE EVENT DATE: 20220701
